FAERS Safety Report 8193430-6 (Version None)
Quarter: 2012Q1

REPORT INFORMATION
  Report Type: 
  Country: None (occurrence: None)
  Receive Date: 20120308
  Receipt Date: 20120227
  Transmission Date: 20120608
  Serious: Yes (Other)
  Sender: FDA-Public Use
  Company Number: US-ELI_LILLY_AND_COMPANY-US201202008527

PATIENT
  Sex: Female

DRUGS (5)
  1. CALCIUM [Concomitant]
  2. FORTEO [Suspect]
     Dosage: 20 UG, QD
     Route: 065
     Dates: start: 20120226, end: 20120226
  3. PREDNISONE TAB [Concomitant]
  4. DUREZOL [Concomitant]
  5. FORTEO [Suspect]
     Indication: OSTEOPOROSIS
     Dosage: 20 UG, QD
     Route: 065

REACTIONS (10)
  - CORNEAL DISORDER [None]
  - CALCINOSIS [None]
  - HAND FRACTURE [None]
  - HERPES ZOSTER [None]
  - BLOOD CALCIUM INCREASED [None]
  - FALL [None]
  - CONJUNCTIVITIS VIRAL [None]
  - ILL-DEFINED DISORDER [None]
  - CORNEAL TRANSPLANT [None]
  - HIP FRACTURE [None]
